FAERS Safety Report 5902182-9 (Version None)
Quarter: 2008Q3

REPORT INFORMATION
  Report Type: 
  Country: None (occurrence: None)
  Receive Date: 20080919
  Receipt Date: 20080722
  Transmission Date: 20090109
  Serious: No
  Sender: FDA-Public Use
  Company Number: US-WYE-H05215208

PATIENT
  Age: 55 Year
  Sex: Male
  Weight: 108.96 kg

DRUGS (4)
  1. PRISTIQ [Suspect]
     Indication: ANXIETY
     Dosage: UNKNOWN, ORAL
     Route: 048
     Dates: start: 20080628
  2. ZETIA [Concomitant]
  3. CRESTOR [Concomitant]
  4. NORVASC [Concomitant]

REACTIONS (3)
  - DECREASED APPETITE [None]
  - DYSPEPSIA [None]
  - NAUSEA [None]
